FAERS Safety Report 4846462-7 (Version None)
Quarter: 2005Q4

REPORT INFORMATION
  Report Type: 
  Country: None (occurrence: None)
  Receive Date: 20051201
  Receipt Date: 20051118
  Transmission Date: 20060501
  Serious: Yes (Other)
  Sender: FDA-Public Use
  Company Number: 12913

PATIENT
  Age: 41 Year
  Sex: Male

DRUGS (4)
  1. PACLITAXEL [Suspect]
     Indication: LUNG ADENOCARCINOMA
     Dosage: 200 MG/M2 PER_CYCLE
  2. PACLITAXEL [Suspect]
     Indication: METASTASES TO LUNG
     Dosage: 200 MG/M2 PER_CYCLE
  3. CARBOPLATIN [Suspect]
     Indication: LUNG ADENOCARCINOMA
     Dosage: 6 AUC
  4. CARBOPLATIN [Suspect]
     Indication: METASTASES TO LUNG
     Dosage: 6 AUC

REACTIONS (2)
  - DRUG INEFFECTIVE [None]
  - PNEUMOTHORAX [None]
